FAERS Safety Report 19398987 (Version 1)
Quarter: 2021Q2

REPORT INFORMATION
  Report Type: Other
  Country: US (occurrence: US)
  Receive Date: 20210610
  Receipt Date: 20210610
  Transmission Date: 20210717
  Serious: No
  Sender: FDA-Public Use
  Company Number: US-NEUROCRINE BIOSCIENCES INC.-2021NBI02717

PATIENT

DRUGS (9)
  1. GABAPENTIN. [Concomitant]
     Active Substance: GABAPENTIN
     Dosage: UNK
  2. THORAZINE [Concomitant]
     Active Substance: CHLORPROMAZINE
     Dosage: UNK
  3. FAMOTIDINE. [Concomitant]
     Active Substance: FAMOTIDINE
     Dosage: UNK
  4. INGREZZA [Suspect]
     Active Substance: VALBENAZINE
     Indication: TARDIVE DYSKINESIA
     Dosage: 80 MILLIGRAM DAILY
     Route: 048
     Dates: end: 202105
  5. ABREVA [Concomitant]
     Active Substance: DOCOSANOL
     Dosage: UNK
  6. GALAFOLD [Concomitant]
     Active Substance: MIGALASTAT HYDROCHLORIDE
     Dosage: UNK
  7. LOVAX [Concomitant]
     Dosage: UNK
  8. ASPIRIN (E.C.) [Concomitant]
     Active Substance: ASPIRIN
     Dosage: UNK
  9. OMEGA 100 [Concomitant]
     Dosage: UNK

REACTIONS (1)
  - Mobility decreased [Unknown]
